FAERS Safety Report 4608842-4 (Version None)
Quarter: 2005Q1

REPORT INFORMATION
  Report Type: 
  Country: None (occurrence: None)
  Receive Date: 20050311
  Receipt Date: 20050225
  Transmission Date: 20050727
  Serious: Yes (Other)
  Sender: FDA-Public Use
  Company Number: 2005EU000375

PATIENT
  Age: 58 Year
  Sex: Male

DRUGS (10)
  1. PROGRAF [Suspect]
     Indication: HEART TRANSPLANT
     Dosage: 1.50 MG, BID, ORAL
     Route: 048
     Dates: start: 20050214
  2. RIMIFON [Suspect]
     Indication: HEART TRANSPLANT
     Dosage: 100.00 MG, TID, ORAL
     Route: 048
     Dates: start: 20050211
  3. MYAMBUTOL [Suspect]
     Indication: HEART TRANSPLANT
     Dosage: 400.00 MG, TID, ORAL
     Route: 048
     Dates: start: 20050211
  4. PYRAZINAMIDE [Concomitant]
  5. IMUREK [Concomitant]
  6. PRAVASTATIN [Concomitant]
  7. NORVASC [Concomitant]
  8. ACTRAPID INSULIN NOVO (INSULIN) [Concomitant]
  9. RIFABUTIN (RIFABUTIN) [Concomitant]
  10. COAPROVEL (IRBESARTAN) [Concomitant]

REACTIONS (6)
  - ACUTE PSYCHOSIS [None]
  - AGGRESSION [None]
  - DRUG LEVEL INCREASED [None]
  - DYSAESTHESIA [None]
  - RESTLESSNESS [None]
  - TUBERCULOSIS [None]
